FAERS Safety Report 16965680 (Version 1)
Quarter: 2019Q4

REPORT INFORMATION
  Report Type: Spontaneous
  Country: LT (occurrence: LT)
  Receive Date: 20191027
  Receipt Date: 20191027
  Transmission Date: 20200122
  Serious: No
  Sender: FDA-Public Use
  Company Number: None

PATIENT
  Age: 17 Year
  Sex: Female
  Weight: 96 kg

DRUGS (4)
  1. ^SOMNOLS^/ ^ZOPICLONUM^ [Suspect]
     Active Substance: ZOPICLONE
     Indication: INSOMNIA
     Dosage: ?          QUANTITY:1 TABLET(S);?
     Route: 048
  2. VENLAFAXINE [Concomitant]
     Active Substance: VENLAFAXINE HYDROCHLORIDE
  3. SELENIUM PLUS ZINK [Concomitant]
  4. B6 [Concomitant]
     Active Substance: PYRIDOXINE HYDROCHLORIDE

REACTIONS (2)
  - Dysgeusia [None]
  - Abdominal discomfort [None]

NARRATIVE: CASE EVENT DATE: 20191003
